FAERS Safety Report 6397564-8 (Version None)
Quarter: 2009Q4

REPORT INFORMATION
  Report Type: 
  Country: None (occurrence: None)
  Receive Date: 20091012
  Receipt Date: 20090803
  Transmission Date: 20100525
  Serious: No
  Sender: FDA-Public Use
  Company Number: US-BAYER-200930478NA

PATIENT
  Age: 4 Year
  Sex: Female

DRUGS (2)
  1. MAGNEVIST [Suspect]
     Indication: DRUG USE FOR UNKNOWN INDICATION
     Dosage: VIA ANTECUBITAL VEIN WITHOUT POWER INJECTOR
     Route: 042
     Dates: start: 20090730, end: 20090730
  2. ANESTHESIA [Concomitant]
     Indication: DRUG USE FOR UNKNOWN INDICATION

REACTIONS (1)
  - URTICARIA [None]
